FAERS Safety Report 10969285 (Version 1)
Quarter: 2015Q1

REPORT INFORMATION
  Report Type: Spontaneous
  Country: US (occurrence: US)
  Receive Date: 20150331
  Receipt Date: 20150331
  Transmission Date: 20150721
  Serious: Yes (Other)
  Sender: FDA-Public Use
  Company Number: US-BEH-2015049967

PATIENT
  Age: 16 Year
  Sex: Female

DRUGS (1)
  1. INTRAVENOUS IMMUNOGLOBULIN [Suspect]
     Active Substance: HUMAN IMMUNOGLOBULIN G
     Indication: IRITIS
     Dosage: 3 INFUSION CYCLES OF 1G/KG EVERY 4 WEEKS
     Route: 042

REACTIONS (2)
  - Therapeutic product ineffective for unapproved indication [Unknown]
  - Iritis [Unknown]
